FAERS Safety Report 6382948-4 (Version None)
Quarter: 2009Q3

REPORT INFORMATION
  Report Type: 
  Country: None (occurrence: None)
  Receive Date: 20090930
  Receipt Date: 20090917
  Transmission Date: 20100115
  Serious: Yes (Hospitalization)
  Sender: FDA-Public Use
  Company Number: FR-PFIZER INC-2009270329

PATIENT
  Age: 84 Year

DRUGS (6)
  1. ALDACTONE [Suspect]
     Indication: CARDIAC FAILURE
     Dosage: 25 MG, 1X/DAY
     Route: 048
     Dates: end: 20090512
  2. TIOTROPIUM BROMIDE MONOHYDRATE [Suspect]
     Indication: ASTHMA
     Dosage: 18 UG, 1X/DAY
     Route: 048
     Dates: end: 20090501
  3. RAMIPRIL [Suspect]
     Dosage: 2.5 MG, 1X/DAY
     Route: 048
     Dates: start: 20090101, end: 20090512
  4. LASIX [Suspect]
     Indication: HYPERTENSION
     Dosage: 60 MG, 1X/DAY
     Route: 048
  5. DISCOTRINE [Suspect]
     Indication: CARDIAC FAILURE
     Dosage: 10 MG, 1X/DAY
     Route: 048
     Dates: end: 20090512
  6. SYMBICORT [Concomitant]
     Indication: ASTHMA
     Dosage: 200/6 MCG

REACTIONS (1)
  - PEMPHIGOID [None]
